FAERS Safety Report 19974401 (Version 1)
Quarter: 2021Q4

REPORT INFORMATION
  Report Type: Spontaneous
  Country: US (occurrence: US)
  Receive Date: 20211019
  Receipt Date: 20211019
  Transmission Date: 20220304
  Serious: Yes (Life-Threatening, Hospitalization)
  Sender: FDA-Public Use
  Company Number: None

PATIENT
  Age: 61 Year
  Sex: Male
  Weight: 106 kg

DRUGS (1)
  1. BARICITINIB [Suspect]
     Active Substance: BARICITINIB
     Indication: COVID-19 pneumonia
     Route: 048
     Dates: start: 20210930, end: 20211008

REACTIONS (5)
  - Radial pulse abnormal [None]
  - Peripheral ischaemia [None]
  - Thrombosis [None]
  - Paraesthesia [None]
  - Respiratory disorder [None]

NARRATIVE: CASE EVENT DATE: 20210930
